FAERS Safety Report 6151491-X (Version None)
Quarter: 2009Q2

REPORT INFORMATION
  Report Type: 
  Country: None (occurrence: None)
  Receive Date: 20090410
  Receipt Date: 20090331
  Transmission Date: 20091009
  Serious: Yes (Hospitalization)
  Sender: FDA-Public Use
  Company Number: JP-JNJFOC-20090303080

PATIENT
  Sex: Female

DRUGS (10)
  1. REMICADE [Suspect]
     Route: 042
  2. REMICADE [Suspect]
     Indication: RHEUMATOID ARTHRITIS
     Dosage: 3 INFUSIONS ON UNSPECIFIED DATES
     Route: 042
  3. PREDONINE [Suspect]
     Indication: RHEUMATOID ARTHRITIS
     Route: 048
  4. RHEUMATREX [Concomitant]
     Indication: RHEUMATOID ARTHRITIS
     Route: 048
  5. ISCOTIN [Concomitant]
     Indication: TUBERCULOSIS
     Route: 048
  6. FOLIAMIN [Concomitant]
     Indication: RHEUMATOID ARTHRITIS
     Route: 048
  7. OMEPRAL [Concomitant]
     Indication: REFLUX OESOPHAGITIS
     Route: 048
  8. DIOVAN [Concomitant]
     Indication: HYPERTENSION
     Route: 048
  9. BENET [Concomitant]
     Indication: OSTEOPOROSIS
     Route: 048
  10. LOXONIN [Concomitant]
     Indication: RHEUMATOID ARTHRITIS
     Route: 048

REACTIONS (1)
  - PNEUMOCYSTIS JIROVECI PNEUMONIA [None]
